FAERS Safety Report 17982969 (Version 1)
Quarter: 2020Q3

REPORT INFORMATION
  Report Type: Spontaneous
  Country: US (occurrence: US)
  Receive Date: 20200702
  Receipt Date: 20200702
  Transmission Date: 20201103
  Serious: Yes (Hospitalization)
  Sender: FDA-Public Use
  Company Number: None

PATIENT
  Sex: Female

DRUGS (2)
  1. NONE REPORTED [Concomitant]
  2. ZYKADIA [Suspect]
     Active Substance: CERITINIB
     Indication: ADRENAL GLAND CANCER
     Dosage: ROUTE: GTUBE?FREQUENCY:  QD ALT 37MG
     Route: 050

REACTIONS (1)
  - Hospitalisation [None]
